FAERS Safety Report 13231870 (Version 1)
Quarter: 2017Q1

REPORT INFORMATION
  Report Type: Spontaneous
  Country: US (occurrence: US)
  Receive Date: 20170214
  Receipt Date: 20170214
  Transmission Date: 20170428
  Serious: Yes (Other)
  Sender: FDA-Public Use
  Company Number: US-HERITAGE PHARMACEUTICALS-2016HTG00051

PATIENT
  Sex: Female
  Weight: 52.15 kg

DRUGS (8)
  1. VENLAFAXINE HYDROCHLORIDE. [Suspect]
     Active Substance: VENLAFAXINE HYDROCHLORIDE
     Indication: DEPRESSION
     Dosage: 2 TABLETS, 1X/DAY
     Route: 048
  2. LAMICTAL [Suspect]
     Active Substance: LAMOTRIGINE
  3. PROPRANOLOL (BRAND INDERAL) [Concomitant]
     Dosage: UNK, AS NEEDED
     Dates: start: 20151016
  4. CLONAZEPAM. [Concomitant]
     Active Substance: CLONAZEPAM
     Dosage: UNK
  5. ULTRAM [Concomitant]
     Active Substance: TRAMADOL HYDROCHLORIDE
     Dosage: 50 MG, AS NEEDED
  6. TOPAMAX [Suspect]
     Active Substance: TOPIRAMATE
  7. IMITREX [Concomitant]
     Active Substance: SUMATRIPTAN SUCCINATE
     Dosage: UNK
  8. VITAMIN D [Concomitant]
     Active Substance: CHOLECALCIFEROL
     Dosage: 1 CAPSULES, 1X/WEEK
     Dates: start: 20151224

REACTIONS (8)
  - Palpitations [Unknown]
  - Somnolence [Unknown]
  - Drug ineffective [Not Recovered/Not Resolved]
  - Depression [Not Recovered/Not Resolved]
  - Vomiting [Unknown]
  - Weight increased [Unknown]
  - Anger [Unknown]
  - Nausea [Unknown]
